FAERS Safety Report 9372758 (Version 1)
Quarter: 2013Q2

REPORT INFORMATION
  Report Type: Spontaneous
  Country: FR (occurrence: FR)
  Receive Date: 20130627
  Receipt Date: 20130627
  Transmission Date: 20140414
  Serious: Yes (Life-Threatening, Hospitalization)
  Sender: FDA-Public Use
  Company Number: FR-ASTRAZENECA-2013SE48461

PATIENT
  Age: 69 Year
  Sex: Female

DRUGS (16)
  1. INEXIUM [Suspect]
     Route: 048
  2. IMUREL [Suspect]
     Indication: MUSCULAR WEAKNESS
     Route: 048
     Dates: end: 20130312
  3. CORTANCYL [Suspect]
     Indication: MUSCULAR WEAKNESS
  4. SYMBICORT TBH [Concomitant]
     Route: 055
  5. UMULINE [Concomitant]
  6. KALEORID [Concomitant]
     Dosage: SR 600 MG
  7. PLAVIX [Concomitant]
  8. RAMIPRIL [Concomitant]
  9. RISEDRONATE MONOSODIQUE ANHYDRE [Concomitant]
  10. LOVENOX [Concomitant]
  11. SPECIAFOLDINE [Concomitant]
  12. CERIS [Concomitant]
  13. OROCAL [Concomitant]
  14. MESTINON [Concomitant]
  15. ATROVENT [Concomitant]
  16. BRICANYL [Concomitant]

REACTIONS (6)
  - Pneumonia [Recovered/Resolved]
  - Haemodynamic instability [Unknown]
  - Acute respiratory failure [Unknown]
  - Respiratory moniliasis [Unknown]
  - Herpes simplex pneumonia [Unknown]
  - Pneumonia influenzal [Unknown]
